FAERS Safety Report 10626112 (Version 1)
Quarter: 2014Q4

REPORT INFORMATION
  Report Type: Spontaneous
  Country: US (occurrence: None)
  Receive Date: 20141121
  Receipt Date: 20141121
  Transmission Date: 20150529
  Serious: No
  Sender: FDA-Public Use
  Company Number: 163-10004-14081618

PATIENT
  Age: 81 Year
  Sex: Female

DRUGS (1)
  1. OTEZLA [Suspect]
     Active Substance: APREMILAST
     Indication: PSORIATIC ARTHROPATHY
     Dosage: 2 IN 1 D
     Route: 048
     Dates: start: 20140610, end: 20140805

REACTIONS (5)
  - Oropharyngeal pain [None]
  - Lip swelling [None]
  - Rash [None]
  - Depression [None]
  - Headache [None]

NARRATIVE: CASE EVENT DATE: 2014
